FAERS Safety Report 13518265 (Version 1)
Quarter: 2017Q2

REPORT INFORMATION
  Report Type: Spontaneous
  Country: US (occurrence: US)
  Receive Date: 20170505
  Receipt Date: 20170505
  Transmission Date: 20170830
  Serious: Yes (Death)
  Sender: FDA-Public Use
  Company Number: None

PATIENT
  Age: 88 Year
  Sex: Male

DRUGS (9)
  1. METOPROLOL. [Concomitant]
     Active Substance: METOPROLOL
  2. ELIGARD [Suspect]
     Active Substance: LEUPROLIDE ACETATE
     Indication: PROSTATE CANCER
     Dosage: FREQUENCY - Q 6 MONTHS
     Route: 058
     Dates: start: 20141014, end: 20170414
  3. CALCIUM [Concomitant]
     Active Substance: CALCIUM
  4. BABY ASPIRIN [Concomitant]
     Active Substance: ASPIRIN
  5. GLIPIZIDE. [Concomitant]
     Active Substance: GLIPIZIDE
  6. ATORVASTATIN [Concomitant]
     Active Substance: ATORVASTATIN
  7. BICALUTAMIDE. [Concomitant]
     Active Substance: BICALUTAMIDE
  8. PROLIA [Suspect]
     Active Substance: DENOSUMAB
     Indication: PROSTATE CANCER
     Dosage: FREQUENCY - Q 6 MONTHS
     Route: 058
     Dates: start: 20151014, end: 20170414
  9. ST JOSEPH^S AS CHW [Concomitant]

REACTIONS (2)
  - Thrombosis [None]
  - Brain neoplasm [None]

NARRATIVE: CASE EVENT DATE: 20170417
